FAERS Safety Report 19745990 (Version 2)
Quarter: 2021Q3

REPORT INFORMATION
  Report Type: Spontaneous
  Country: GB (occurrence: GB)
  Receive Date: 20210825
  Receipt Date: 20210827
  Transmission Date: 20211014
  Serious: Yes (Hospitalization)
  Sender: FDA-Public Use
  Company Number: NVSC2021GB191286

PATIENT
  Age: 7 Decade
  Sex: Male

DRUGS (2)
  1. LEVETIRACETAM. [Suspect]
     Active Substance: LEVETIRACETAM
     Indication: GENERALISED TONIC-CLONIC SEIZURE
     Dosage: 1 G, BID
     Route: 065
  2. CLOBAZAM. [Concomitant]
     Active Substance: CLOBAZAM
     Indication: GENERALISED TONIC-CLONIC SEIZURE
     Dosage: 10 MG, NOCTE
     Route: 065

REACTIONS (3)
  - Paranoia [Unknown]
  - Drug ineffective [Unknown]
  - Agitation [Unknown]
